FAERS Safety Report 7108569-3 (Version None)
Quarter: 2010Q4

REPORT INFORMATION
  Report Type: 
  Country: None (occurrence: None)
  Receive Date: 20101117
  Receipt Date: 20101004
  Transmission Date: 20110411
  Serious: No
  Sender: FDA-Public Use
  Company Number: A0884792A

PATIENT
  Age: 57 Year
  Sex: Female

DRUGS (7)
  1. VOTRIENT [Suspect]
     Indication: SARCOMA
     Dosage: 800MG PER DAY
     Route: 048
     Dates: start: 20100828
  2. LISINOPRIL [Concomitant]
  3. NORVASC [Concomitant]
  4. OXYCONTIN [Concomitant]
  5. OXYCODONE HCL [Concomitant]
  6. MIRAPEX [Concomitant]
  7. OXYBUTYNIN [Concomitant]

REACTIONS (1)
  - HYPERTENSION [None]
